FAERS Safety Report 10235981 (Version 1)
Quarter: 2014Q2

REPORT INFORMATION
  Report Type: Spontaneous
  Country: SE (occurrence: SE)
  Receive Date: 20140613
  Receipt Date: 20140613
  Transmission Date: 20141212
  Serious: Yes (Other)
  Sender: FDA-Public Use
  Company Number: SE-ASTRAZENECA-2014SE39373

PATIENT
  Age: 10 Year
  Sex: Male

DRUGS (2)
  1. SYMBICORT TURBUHALER [Suspect]
     Indication: ASTHMA
     Dosage: 160/4.5 MCG, TWO TIMES A DAY
     Route: 055
     Dates: start: 20140403, end: 20140429
  2. SYMBICORT TURBUHALER [Suspect]
     Indication: HYPERSENSITIVITY
     Dosage: 160/4.5 MCG, TWO TIMES A DAY
     Route: 055
     Dates: start: 20140403, end: 20140429

REACTIONS (2)
  - Somnambulism [Recovered/Resolved]
  - Depression [Recovered/Resolved]
